FAERS Safety Report 7535683-0 (Version None)
Quarter: 2011Q2

REPORT INFORMATION
  Report Type: 
  Country: None (occurrence: None)
  Receive Date: 20110602
  Receipt Date: 20110518
  Transmission Date: 20111010
  Serious: Yes (Other)
  Sender: FDA-Public Use
  Company Number: 2011AT000172

PATIENT
  Age: 36 Year
  Sex: Male

DRUGS (1)
  1. TESTOSTERONE [Suspect]
     Indication: BLOOD TESTOSTERONE DECREASED

REACTIONS (5)
  - PHARYNGEAL DISORDER [None]
  - HEADACHE [None]
  - DISEASE RECURRENCE [None]
  - ANGIOFIBROMA [None]
  - NASAL SEPTUM DEVIATION [None]
